FAERS Safety Report 5402755-6 (Version None)
Quarter: 2007Q3

REPORT INFORMATION
  Report Type: 
  Country: None (occurrence: None)
  Receive Date: 20070801
  Receipt Date: 20070725
  Transmission Date: 20080115
  Serious: Yes (Other)
  Sender: FDA-Public Use
  Company Number: JP-AVENTIS-200711848JP

PATIENT
  Age: 82 Year
  Sex: Female
  Weight: 44.8 kg

DRUGS (12)
  1. AMARYL [Suspect]
     Indication: DIABETES MELLITUS
     Route: 048
     Dates: start: 20070629, end: 20070710
  2. PLETAL [Suspect]
     Dosage: DOSE: 1 TABLET
     Route: 048
     Dates: start: 20070330, end: 20070713
  3. LASIX [Concomitant]
     Indication: HYPERTENSION
     Route: 048
     Dates: start: 20060510, end: 20070703
  4. LASIX [Concomitant]
     Route: 048
     Dates: start: 20070704, end: 20070708
  5. LASIX [Concomitant]
     Route: 048
     Dates: start: 20070709
  6. LASIX [Concomitant]
     Dosage: DOSE: 1 A
     Route: 041
     Dates: start: 20070704, end: 20070704
  7. LASIX [Concomitant]
     Dosage: DOSE: 1 A
     Route: 041
     Dates: start: 20070709, end: 20070709
  8. ENALAPRIL MALEATE [Concomitant]
     Indication: HYPERTENSION
     Dosage: DOSE: 1 TABLETS
     Route: 048
     Dates: start: 20060510
  9. ADALAT [Concomitant]
     Indication: HYPERTENSION
     Dosage: DOSE: 3 TABLETS
     Route: 048
     Dates: start: 20060510
  10. METHYCOBAL                         /00056201/ [Concomitant]
     Indication: NEUROPATHY PERIPHERAL
     Dosage: DOSE: 1 TABLET
     Route: 048
     Dates: start: 20060510
  11. AMOBAN [Concomitant]
     Indication: INSOMNIA
     Dosage: DOSE: 1 TABLET
     Route: 048
     Dates: start: 20060510
  12. PURSENNID                          /00571901/ [Concomitant]
     Indication: CONSTIPATION
     Dosage: DOSE: 1 TABLET
     Route: 048
     Dates: start: 20060510

REACTIONS (1)
  - CARDIAC FAILURE [None]
